FAERS Safety Report 9708198 (Version 1)
Quarter: 2013Q4

REPORT INFORMATION
  Report Type: Spontaneous
  Country: IT (occurrence: IT)
  Receive Date: 20131125
  Receipt Date: 20131125
  Transmission Date: 20140711
  Serious: Yes (Hospitalization)
  Sender: FDA-Public Use
  Company Number: IT-TEVA-444658ISR

PATIENT
  Age: 16 Year
  Sex: Female

DRUGS (1)
  1. CARBOLITHIUM 150 MG [Suspect]
     Dosage: 1050 MILLIGRAM DAILY;
     Route: 048
     Dates: start: 20131011, end: 20131011

REACTIONS (3)
  - Drug abuse [Recovered/Resolved]
  - Headache [Recovered/Resolved]
  - Nausea [Recovered/Resolved]
